FAERS Safety Report 7746836-0 (Version None)
Quarter: 2011Q3

REPORT INFORMATION
  Report Type: 
  Country: None (occurrence: None)
  Receive Date: 20110913
  Receipt Date: 20110906
  Transmission Date: 20111222
  Serious: Yes (Hospitalization)
  Sender: FDA-Public Use
  Company Number: LT-JNJFOC-20110812286

PATIENT
  Age: 32 Year
  Sex: Male

DRUGS (8)
  1. REMICADE [Suspect]
     Route: 042
     Dates: start: 20110414
  2. REMICADE [Suspect]
     Route: 042
     Dates: end: 20110602
  3. REMICADE [Suspect]
     Route: 042
     Dates: start: 20110526
  4. REMICADE [Suspect]
     Indication: PSORIATIC ARTHROPATHY
     Route: 042
     Dates: start: 20110526
  5. REMICADE [Suspect]
     Route: 042
     Dates: start: 20110428
  6. REMICADE [Suspect]
     Indication: ANKYLOSING SPONDYLITIS
     Route: 042
     Dates: end: 20110602
  7. REMICADE [Suspect]
     Route: 042
     Dates: start: 20110428
  8. REMICADE [Suspect]
     Route: 042
     Dates: start: 20110414

REACTIONS (3)
  - TONSILLITIS [None]
  - PYREXIA [None]
  - TUBERCULOSIS [None]
